FAERS Safety Report 24991470 (Version 2)
Quarter: 2025Q2

REPORT INFORMATION
  Report Type: Spontaneous
  Country: US (occurrence: US)
  Receive Date: 20250220
  Receipt Date: 20250523
  Transmission Date: 20250716
  Serious: No
  Sender: ARCUTIS
  Company Number: US-ARCUTIS BIOTHERAPEUTICS INC-2025AER000018

PATIENT

DRUGS (2)
  1. ZORYVE [Suspect]
     Active Substance: ROFLUMILAST
     Indication: Seborrhoeic dermatitis
     Dosage: 1 APPLICATION QD
     Route: 061
     Dates: start: 20241214
  2. ZORYVE [Suspect]
     Active Substance: ROFLUMILAST
     Dosage: 1 APPLICATION QD
     Route: 061

REACTIONS (3)
  - Skin exfoliation [Unknown]
  - Product dose omission issue [Unknown]
  - Drug ineffective [Unknown]

NARRATIVE: CASE EVENT DATE: 20250108
